FAERS Safety Report 4797311-7 (Version None)
Quarter: 2005Q3

REPORT INFORMATION
  Report Type: 
  Country: None (occurrence: None)
  Receive Date: 20050930
  Receipt Date: 20050309
  Transmission Date: 20060218
  Serious: Yes (Life-Threatening, Other)
  Sender: FDA-Public Use
  Company Number: HQWYE020710MAR05

PATIENT
  Age: 36 Year
  Sex: Male

DRUGS (1)
  1. CORDARONE [Suspect]
     Dosage: INTRAVENOUS
     Route: 042
     Dates: start: 20050308, end: 20050308

REACTIONS (1)
  - ANAPHYLACTIC SHOCK [None]
